FAERS Safety Report 9720737 (Version 1)
Quarter: 2013Q4

REPORT INFORMATION
  Report Type: Spontaneous
  Country: US (occurrence: US)
  Receive Date: 20131129
  Receipt Date: 20131129
  Transmission Date: 20140711
  Serious: Yes (Other)
  Sender: FDA-Public Use
  Company Number: PHEH2013US024928

PATIENT
  Age: 3 Year
  Sex: Female

DRUGS (3)
  1. TRILEPTAL [Suspect]
     Indication: CONVULSION
     Dosage: UNK UKN, UNK
  2. TRILEPTAL [Suspect]
     Dosage: UNK (DOSE INCREASED)
  3. DILANTIN//PHENYTOIN [Concomitant]
     Indication: CONVULSION
     Dosage: UNK UKN, UNK

REACTIONS (5)
  - Faecal incontinence [Unknown]
  - Abasia [Unknown]
  - Crying [Unknown]
  - Convulsion [Unknown]
  - Depressed mood [Unknown]
